FAERS Safety Report 6507242-X (Version None)
Quarter: 2009Q4

REPORT INFORMATION
  Report Type: 
  Country: None (occurrence: None)
  Receive Date: 20091221
  Receipt Date: 20091215
  Transmission Date: 20100525
  Serious: Yes (Other)
  Sender: FDA-Public Use
  Company Number: PHEH2009US17820

PATIENT
  Sex: Female

DRUGS (1)
  1. STALEVO 100 [Suspect]

REACTIONS (2)
  - CARDIAC PACEMAKER INSERTION [None]
  - HEART RATE IRREGULAR [None]
